FAERS Safety Report 5711659-0 (Version None)
Quarter: 2008Q2

REPORT INFORMATION
  Report Type: 
  Country: None (occurrence: None)
  Receive Date: 20080421
  Receipt Date: 20080406
  Transmission Date: 20081010
  Serious: Yes (Hospitalization)
  Sender: FDA-Public Use
  Company Number: US-BAUSCH-2008BL001584

PATIENT
  Age: 16 Year
  Sex: Male
  Weight: 49 kg

DRUGS (7)
  1. CIPROFLOXACIN [Suspect]
     Indication: ABSCESS
     Route: 042
  2. AZATHIOPRINE [Concomitant]
     Route: 048
  3. MESALAMINE [Concomitant]
     Route: 048
  4. RANITIDINE [Concomitant]
     Route: 048
  5. FERROUS SULFATE [Concomitant]
     Route: 048
  6. METRONIDAZOLE HCL [Concomitant]
     Route: 048
  7. INFLIXIMAB [Concomitant]
     Route: 042

REACTIONS (5)
  - BRADYCARDIA [None]
  - DISCOMFORT [None]
  - ELECTROCARDIOGRAM QT PROLONGED [None]
  - LONG QT SYNDROME [None]
  - NO THERAPEUTIC RESPONSE [None]
